FAERS Safety Report 25669595 (Version 1)
Quarter: 2025Q3

REPORT INFORMATION
  Report Type: Spontaneous
  Country: US (occurrence: US)
  Receive Date: 20250812
  Receipt Date: 20250812
  Transmission Date: 20251021
  Serious: Yes (Death, Life-Threatening, Hospitalization, Other)
  Sender: Unknown Manufacturer
  Company Number: US-STRIDES ARCOLAB LIMITED-2025OS000400

PATIENT
  Age: 56 Year
  Sex: Female

DRUGS (5)
  1. CYCLOSPORINE [Suspect]
     Active Substance: CYCLOSPORINE
     Indication: Myelodysplastic syndrome with single lineage dysplasia
     Route: 065
  2. CYCLOSPORINE [Suspect]
     Active Substance: CYCLOSPORINE
     Indication: Aplastic anaemia
  3. THYMOCYTE IMMUNE GLOBULIN NOS [Suspect]
     Active Substance: THYMOCYTE IMMUNE GLOBULIN NOS
     Indication: Myelodysplastic syndrome with single lineage dysplasia
     Route: 065
  4. THYMOCYTE IMMUNE GLOBULIN NOS [Suspect]
     Active Substance: THYMOCYTE IMMUNE GLOBULIN NOS
     Indication: Aplastic anaemia
  5. VORICONAZOLE [Concomitant]
     Active Substance: VORICONAZOLE
     Indication: Sinusitis fungal
     Route: 042

REACTIONS (3)
  - Pulmonary alveolar haemorrhage [Fatal]
  - Bronchopulmonary aspergillosis [Fatal]
  - Off label use [Unknown]
